FAERS Safety Report 23369927 (Version 1)
Quarter: 2024Q1

REPORT INFORMATION
  Report Type: Spontaneous
  Country: DE (occurrence: DE)
  Receive Date: 20240105
  Receipt Date: 20240105
  Transmission Date: 20240410
  Serious: Yes (Other)
  Sender: FDA-Public Use
  Company Number: DE-EMBRYOTOX-202300180

PATIENT
  Age: 1 Day
  Sex: Male
  Weight: 2.826 kg

DRUGS (6)
  1. DUPIXENT [Suspect]
     Active Substance: DUPILUMAB
     Indication: Neurodermatitis
     Dosage: 300 MG, QOW
     Route: 064
     Dates: start: 20220909, end: 20230611
  2. FOSTERA [Concomitant]
     Indication: Asthma
     Dosage: 6 UG, QD, 200 [?G/D ] / 6 [?G/D ]
     Route: 064
     Dates: start: 20220909, end: 20230616
  3. BOOSTRIX [Concomitant]
     Active Substance: TETANUS TOXOID, REDUCED DIPHTHERIA TOXOID AND ACELLULAR PERTUSSIS VACCINE, ADSORBED ANTIGENS
     Indication: Immunisation
     Dosage: UNK
     Route: 064
     Dates: start: 20230414, end: 20230414
  4. DESLORATADINE [Concomitant]
     Active Substance: DESLORATADINE
     Indication: Dermatitis allergic
     Dosage: 5 [MG/D (BEI BEDARF) ]/ 5 MG/D ON DEMAND, OCCASIONALLY
     Route: 064
     Dates: start: 20221226, end: 20230606
  5. ACETAMINOPHEN [Concomitant]
     Active Substance: ACETAMINOPHEN
     Indication: Headache
     Dosage: 1000 [MG/D ]/ 1000 MG/D
     Route: 064
     Dates: start: 20230312, end: 20230317
  6. FOLIO FORTE [CYANOCOBALAMIN;FOLIC ACID;POTASSIUM IODIDE] [Concomitant]
     Indication: Prophylaxis of neural tube defect
     Dosage: 0.8 MG, QD
     Route: 064
     Dates: start: 20220909, end: 20230616

REACTIONS (2)
  - Small for dates baby [Recovered/Resolved]
  - Foetal exposure during pregnancy [Recovered/Resolved]

NARRATIVE: CASE EVENT DATE: 20220909
